FAERS Safety Report 7802385-2 (Version None)
Quarter: 2011Q4

REPORT INFORMATION
  Report Type: 
  Country: None (occurrence: None)
  Receive Date: 20111005
  Receipt Date: 20110921
  Transmission Date: 20120403
  Serious: Yes (Death)
  Sender: FDA-Public Use
  Company Number: UTC-010405

PATIENT
  Age: 66 Year
  Sex: Male
  Weight: 81.8 kg

DRUGS (6)
  1. COUMADIN [Concomitant]
  2. DIURETICS (DIURETICS) [Concomitant]
  3. REVATIO [Concomitant]
  4. O2 (OXYGEN) [Concomitant]
  5. ASPIRIN [Concomitant]
  6. REMODULIN [Suspect]
     Indication: PULMONARY ARTERIAL HYPERTENSION
     Dosage: 0.0295 UG/KG, INTRAVENOUS
     Route: 042
     Dates: start: 20110610

REACTIONS (1)
  - DEATH [None]
